FAERS Safety Report 25187959 (Version 1)
Quarter: 2025Q2

REPORT INFORMATION
  Report Type: Spontaneous
  Country: CN (occurrence: None)
  Receive Date: 20250411
  Receipt Date: 20250411
  Transmission Date: 20250716
  Serious: Yes (Hospitalization, Other)
  Sender: ORION
  Company Number: CN-MLMSERVICE-20250403-PI462196-00029-3

PATIENT
  Age: 63 Year
  Sex: Male

DRUGS (4)
  1. ENTACAPONE [Interacting]
     Active Substance: ENTACAPONE
     Indication: Parkinson^s disease
  2. SELEGILINE [Interacting]
     Active Substance: SELEGILINE
     Indication: Parkinson^s disease
  3. LEVODOPA [Interacting]
     Active Substance: LEVODOPA
     Indication: Parkinson^s disease
  4. CHLORPHENIRAMINE MALEATE\PSEUDOEPHEDRINE HYDROCHLORIDE [Interacting]
     Active Substance: CHLORPHENIRAMINE MALEATE\PSEUDOEPHEDRINE HYDROCHLORIDE
     Indication: Nasopharyngitis
     Dates: start: 20231121

REACTIONS (2)
  - Drug interaction [Recovered/Resolved]
  - Serotonin syndrome [Recovered/Resolved]

NARRATIVE: CASE EVENT DATE: 20231121
